FAERS Safety Report 8570309-9 (Version None)
Quarter: 2012Q3

REPORT INFORMATION
  Report Type: 
  Country: None (occurrence: None)
  Receive Date: 20120803
  Receipt Date: 20120723
  Transmission Date: 20120928
  Serious: Yes (Hospitalization, Other)
  Sender: FDA-Public Use
  Company Number: US-009507513-1207USA010945

PATIENT

DRUGS (3)
  1. ZOCOR [Interacting]
     Route: 048
  2. ITRACONAZOLE [Suspect]
     Dosage: 100 MG, BID
     Route: 048
  3. CORTICOSTEROIDS (UNSPECIFIED) [Concomitant]

REACTIONS (3)
  - ASTHENIA [None]
  - BLOOD CREATINE PHOSPHOKINASE INCREASED [None]
  - DRUG INTERACTION [None]
